FAERS Safety Report 19712571 (Version 1)
Quarter: 2021Q3

REPORT INFORMATION
  Report Type: Spontaneous
  Country: US (occurrence: US)
  Receive Date: 20210817
  Receipt Date: 20210817
  Transmission Date: 20211014
  Serious: No
  Sender: FDA-Public Use
  Company Number: US-PERRIGO-21US006174

PATIENT
  Age: 45 Year
  Sex: Male
  Weight: 149.66 kg

DRUGS (1)
  1. IBUPROFEN?PHENYLEPHRINE [Suspect]
     Active Substance: IBUPROFEN\PHENYLEPHRINE HYDROCHLORIDE
     Indication: HYPERSENSITIVITY
     Dosage: 2 TABLETS, SINGLE
     Route: 048
     Dates: start: 20210503, end: 20210503

REACTIONS (1)
  - Incorrect dose administered [Recovered/Resolved]

NARRATIVE: CASE EVENT DATE: 20210503
